FAERS Safety Report 14845167 (Version 1)
Quarter: 2018Q2

REPORT INFORMATION
  Report Type: Spontaneous
  Country: US (occurrence: US)
  Receive Date: 20180504
  Receipt Date: 20180504
  Transmission Date: 20180711
  Serious: No
  Sender: FDA-Public Use
  Company Number: US-TEVA-773421ACC

PATIENT
  Sex: Male
  Weight: 54.03 kg

DRUGS (7)
  1. XTANDI [Concomitant]
     Active Substance: ENZALUTAMIDE
     Indication: PROSTATE CANCER
     Dosage: 440 MILLIGRAM DAILY;
  2. ZANTAC [Concomitant]
     Active Substance: RANITIDINE HYDROCHLORIDE
     Indication: GASTROOESOPHAGEAL REFLUX DISEASE
  3. ZANTAC [Concomitant]
     Active Substance: RANITIDINE HYDROCHLORIDE
     Indication: FLATULENCE
  4. PANTOPRAZOLE NA [Concomitant]
     Indication: GASTROOESOPHAGEAL REFLUX DISEASE
  5. SULINDAC. [Suspect]
     Active Substance: SULINDAC
     Indication: ARTHRITIS
     Dosage: AS NEEDED
     Route: 048
     Dates: start: 2016, end: 201704
  6. PANTOPRAZOLE NA [Concomitant]
     Indication: DYSPEPSIA
     Dosage: 40 MILLIGRAM DAILY;
  7. ZANTAC [Concomitant]
     Active Substance: RANITIDINE HYDROCHLORIDE
     Indication: DYSPEPSIA
     Dosage: 300 MILLIGRAM DAILY;
     Dates: start: 201705

REACTIONS (4)
  - Flatulence [Recovering/Resolving]
  - Dyspepsia [Recovering/Resolving]
  - Gastrooesophageal reflux disease [Recovering/Resolving]
  - Impaired healing [Unknown]
